FAERS Safety Report 8477431-6 (Version None)
Quarter: 2012Q2

REPORT INFORMATION
  Report Type: 
  Country: None (occurrence: None)
  Receive Date: 20120629
  Receipt Date: 20120622
  Transmission Date: 20120825
  Serious: Yes (Other)
  Sender: FDA-Public Use
  Company Number: PHFR2012GB003660

PATIENT
  Sex: Female

DRUGS (5)
  1. VALPROATE SODIUM [Suspect]
     Indication: EPILEPSY
  2. TEGRETOL [Suspect]
     Indication: EPILEPSY
  3. DIGOXIN [Concomitant]
  4. WARFARIN SODIUM [Concomitant]
  5. TONOPAN [Suspect]

REACTIONS (7)
  - FALL [None]
  - TREMOR [None]
  - UPPER LIMB FRACTURE [None]
  - ABDOMINAL PAIN UPPER [None]
  - DIZZINESS [None]
  - CARDIAC VALVE DISEASE [None]
  - ABDOMINAL DISCOMFORT [None]
